FAERS Safety Report 24981635 (Version 1)
Quarter: 2025Q1

REPORT INFORMATION
  Report Type: Spontaneous
  Country: US (occurrence: None)
  Receive Date: 20250217
  Receipt Date: 20250217
  Transmission Date: 20250409
  Serious: Yes (Other)
  Sender: FDA-CTU
  Company Number: None

PATIENT
  Age: 72 Year

DRUGS (1)
  1. PYRIDOSTIGMINE BROMIDE [Suspect]
     Active Substance: PYRIDOSTIGMINE BROMIDE
     Route: 048

REACTIONS (1)
  - Postmenopausal haemorrhage [None]

NARRATIVE: CASE EVENT DATE: 20241124
